FAERS Safety Report 10294749 (Version 4)
Quarter: 2014Q3

REPORT INFORMATION
  Report Type: Spontaneous
  Country: US (occurrence: US)
  Receive Date: 20140711
  Receipt Date: 20140807
  Transmission Date: 20150326
  Serious: Yes (Hospitalization, Other)
  Sender: FDA-Public Use
  Company Number: US-009507513-1407USA004563

PATIENT
  Age: 24 Year
  Sex: Female

DRUGS (1)
  1. IMPLANON [Suspect]
     Active Substance: ETONOGESTREL
     Indication: CONTRACEPTION
     Dosage: 68 MG, UNK
     Route: 059
     Dates: start: 20090309, end: 20120215

REACTIONS (6)
  - Ectopic pregnancy [Recovered/Resolved]
  - Unintended pregnancy [Recovered/Resolved]
  - Laparoscopic surgery [Recovered/Resolved]
  - Ectopic pregnancy termination [Recovered/Resolved]
  - Oophorectomy [Recovered/Resolved]
  - Medical device complication [Unknown]

NARRATIVE: CASE EVENT DATE: 20120211
